FAERS Safety Report 4811961-0 (Version None)
Quarter: 2005Q4

REPORT INFORMATION
  Report Type: 
  Country: None (occurrence: None)
  Receive Date: 20051028
  Receipt Date: 20041020
  Transmission Date: 20060501
  Serious: No
  Sender: FDA-Public Use
  Company Number: US-GLAXOSMITHKLINE-A0530649A

PATIENT
  Age: 51 Year
  Sex: Female

DRUGS (6)
  1. ADVAIR DISKUS 100/50 [Suspect]
     Indication: INJURY
     Dosage: 100MCG TWICE PER DAY
     Route: 055
     Dates: start: 20040719, end: 20040930
  2. ALBUTEROL [Concomitant]
  3. ATROVENT [Concomitant]
  4. NEXIUM [Concomitant]
  5. FEMHRT [Concomitant]
  6. PREDNISONE [Concomitant]

REACTIONS (1)
  - DYSPHONIA [None]
